FAERS Safety Report 9365068 (Version 4)
Quarter: 2014Q2

REPORT INFORMATION
  Report Type: Spontaneous
  Country: US (occurrence: US)
  Receive Date: 20130624
  Receipt Date: 20140407
  Transmission Date: 20141212
  Serious: Yes (Disabling, Other)
  Sender: FDA-Public Use
  Company Number: US-PFIZER INC-2013183475

PATIENT
  Age: 48 Year
  Sex: Female
  Weight: 73.9 kg

DRUGS (4)
  1. PREMARIN [Suspect]
     Indication: HORMONE REPLACEMENT THERAPY
     Dosage: 0.9 (NO UNITS PROVIDED), 1X/DAY (EVERY DAY)
     Route: 067
     Dates: start: 1977
  2. PREMARIN [Suspect]
     Dosage: UNK
     Route: 067
     Dates: start: 1977
  3. PREMARIN [Suspect]
     Dosage: 0.9 MG, 1X/DAY
     Route: 048
     Dates: start: 1977
  4. LOSARTAN [Concomitant]
     Indication: HYPERTENSION
     Dosage: 100 MG, 1X/DAY

REACTIONS (6)
  - Hepatic cancer [Recovered/Resolved]
  - Arthritis [Unknown]
  - Therapeutic response changed [Unknown]
  - Feeling abnormal [Unknown]
  - Crying [Unknown]
  - Hot flush [Unknown]
